FAERS Safety Report 4601634-1 (Version None)
Quarter: 2005Q1

REPORT INFORMATION
  Report Type: 
  Country: None (occurrence: None)
  Receive Date: 20050308
  Receipt Date: 20050210
  Transmission Date: 20050727
  Serious: Yes (Disabling)
  Sender: FDA-Public Use
  Company Number: BE-GLAXOSMITHKLINE-B0371983A

PATIENT
  Age: 74 Year
  Sex: Male
  Weight: 60 kg

DRUGS (2)
  1. PAROXETINE HCL [Suspect]
     Indication: ANXIETY
     Dosage: 20MG PER DAY
     Route: 048
     Dates: start: 19940101, end: 20050219
  2. AMIODARONE HCL [Suspect]
     Route: 065

REACTIONS (15)
  - ABDOMINAL PAIN [None]
  - ATRIAL FIBRILLATION [None]
  - ATRIAL FLUTTER [None]
  - DIZZINESS [None]
  - DRUG INTERACTION [None]
  - DYSGRAPHIA [None]
  - GAIT DISTURBANCE [None]
  - INFLAMMATION [None]
  - INTESTINAL OBSTRUCTION [None]
  - IRRITABLE BOWEL SYNDROME [None]
  - LIBIDO DECREASED [None]
  - NAUSEA [None]
  - PERICARDITIS [None]
  - PLEURISY [None]
  - PNEUMONIA [None]
